FAERS Safety Report 7642798-5 (Version None)
Quarter: 2011Q3

REPORT INFORMATION
  Report Type: 
  Country: None (occurrence: None)
  Receive Date: 20110728
  Receipt Date: 20110711
  Transmission Date: 20111222
  Serious: No
  Sender: FDA-Public Use
  Company Number: US-B.I. PHARMACEUTICALS,INC./RIDGEFIELD-2011-BP-15379BP

PATIENT
  Age: 81 Year
  Sex: Female
  Weight: 55.34 kg

DRUGS (14)
  1. LANOXIN [Concomitant]
  2. SPIRONOLACTONE [Concomitant]
     Dosage: 5 MG
  3. ADVAIR DISKUS 100/50 [Concomitant]
     Dosage: 2 PUF
  4. SPIRIVA [Suspect]
     Indication: CHRONIC OBSTRUCTIVE PULMONARY DISEASE
     Dosage: 18 MCG
     Route: 055
     Dates: start: 20110321
  5. CA+MG+VIT D [Concomitant]
  6. ENALAPRIL MALEATE [Concomitant]
     Dosage: 5 MG
  7. O2 [Concomitant]
  8. TYLENOL EX STRENGTH [Concomitant]
  9. CELEBREX [Concomitant]
  10. CARVEDILOL [Concomitant]
     Dosage: 12.5 MG
  11. ISOSORBIDE MONONITRATE [Concomitant]
     Dosage: 60 MG
  12. FLEXERIL [Concomitant]
     Dosage: 10 MG
     Route: 048
  13. NORCO [Concomitant]
  14. ASPIRIN [Concomitant]
     Dosage: 350 MG

REACTIONS (7)
  - PAIN IN EXTREMITY [None]
  - SPINAL OSTEOARTHRITIS [None]
  - BACK PAIN [None]
  - CONSTIPATION [None]
  - PAIN [None]
  - OSTEOARTHRITIS [None]
  - RADICULAR PAIN [None]
